FAERS Safety Report 15290994 (Version 1)
Quarter: 2018Q3

REPORT INFORMATION
  Report Type: Spontaneous
  Country: DK (occurrence: DK)
  Receive Date: 20180817
  Receipt Date: 20180817
  Transmission Date: 20181010
  Serious: Yes (Other)
  Sender: FDA-Public Use
  Company Number: PHHY2018DK069462

PATIENT
  Age: 71 Year
  Sex: Male

DRUGS (1)
  1. OXALIPLATIN. [Suspect]
     Active Substance: OXALIPLATIN
     Indication: ADENOCARCINOMA GASTRIC
     Dosage: 92 MG/M2, UNK
     Route: 065
     Dates: start: 201611, end: 201703

REACTIONS (7)
  - Abdominal distension [Unknown]
  - Peritoneal disorder [Unknown]
  - Intestinal obstruction [Unknown]
  - Intestinal dilatation [Unknown]
  - Small intestinal perforation [Unknown]
  - Abdominal pain [Unknown]
  - Vomiting [Unknown]
